FAERS Safety Report 20201771 (Version 1)
Quarter: 2021Q4

REPORT INFORMATION
  Report Type: Spontaneous
  Country: SE (occurrence: SE)
  Receive Date: 20211217
  Receipt Date: 20211217
  Transmission Date: 20220303
  Serious: Yes (Other)
  Sender: FDA-Public Use
  Company Number: None

PATIENT
  Age: 69 Year
  Sex: Male

DRUGS (9)
  1. EZETIMIBE [Suspect]
     Active Substance: EZETIMIBE
     Indication: Hypercholesterolaemia
     Dosage: 10 MG; EZETIMIBE ACTAVIS 10 MG TABLET
     Route: 048
     Dates: end: 202110
  2. INSULIN ASPART [Concomitant]
     Active Substance: INSULIN ASPART
     Dosage: 100 U/ML; NOVOMIX 30 FLEXPEN 100 U / ML SOLUTION FOR INJECTION, PRE-FILLED IN
  3. ATORVASTATIN [Concomitant]
     Active Substance: ATORVASTATIN
  4. Alfuzosin Rivopharm [Concomitant]
     Dosage: 10 MG; ALFUZOSIN RIVOPHARM 10 MG PROLONGED-RELEASE TABLET
  5. ASPIRIN [Concomitant]
     Active Substance: ASPIRIN
  6. CANDESARTAN CILEXETIL [Concomitant]
     Active Substance: CANDESARTAN CILEXETIL
  7. ACETAMINOPHEN [Concomitant]
     Active Substance: ACETAMINOPHEN
     Dosage: 500 MG; ALVEDON 500 MG FILM-COATED TABLET
  8. METOPROLOL [Concomitant]
     Active Substance: METOPROLOL
  9. JARDIANCE [Concomitant]
     Active Substance: EMPAGLIFLOZIN

REACTIONS (1)
  - Haematochezia [Recovered/Resolved]

NARRATIVE: CASE EVENT DATE: 20211001
